FAERS Safety Report 11631457 (Version 16)
Quarter: 2017Q4

REPORT INFORMATION
  Report Type: Spontaneous
  Country: CA (occurrence: CA)
  Receive Date: 20151015
  Receipt Date: 20171114
  Transmission Date: 20180320
  Serious: Yes (Hospitalization, Other)
  Sender: FDA-Public Use
  Company Number: CA-ROCHE-1645468

PATIENT
  Age: 70 Year
  Sex: Male

DRUGS (16)
  1. XOLAIR [Suspect]
     Active Substance: OMALIZUMAB
     Indication: ASTHMA
     Route: 058
     Dates: start: 20141124
  2. XOLAIR [Suspect]
     Active Substance: OMALIZUMAB
     Route: 058
     Dates: start: 20160120
  3. XOLAIR [Suspect]
     Active Substance: OMALIZUMAB
     Route: 058
     Dates: start: 20170923
  4. XOLAIR [Suspect]
     Active Substance: OMALIZUMAB
     Route: 058
     Dates: start: 20160913
  5. OMEPRAZOLE. [Concomitant]
     Active Substance: OMEPRAZOLE
     Indication: PRODUCT USED FOR UNKNOWN INDICATION
     Route: 065
  6. VENTOLINE [Concomitant]
     Active Substance: ALBUTEROL
     Dosage: 2 DF QD (PUFF), UNK (2-3 TIMES DAILY)
     Route: 065
  7. XOLAIR [Suspect]
     Active Substance: OMALIZUMAB
     Route: 058
     Dates: start: 20151028
  8. CRESTOR [Concomitant]
     Active Substance: ROSUVASTATIN CALCIUM
     Indication: PRODUCT USED FOR UNKNOWN INDICATION
     Route: 065
  9. SPIRIVA [Concomitant]
     Active Substance: TIOTROPIUM BROMIDE MONOHYDRATE
     Indication: PRODUCT USED FOR UNKNOWN INDICATION
     Route: 065
  10. XOLAIR [Suspect]
     Active Substance: OMALIZUMAB
     Route: 058
     Dates: start: 20160518
  11. XOLAIR [Suspect]
     Active Substance: OMALIZUMAB
     Route: 058
     Dates: start: 20170330
  12. ADVAIR HFA [Concomitant]
     Active Substance: FLUTICASONE PROPIONATE\SALMETEROL XINAFOATE
     Indication: PRODUCT USED FOR UNKNOWN INDICATION
     Dosage: 500/50 UG
     Route: 065
  13. VENTOLINE [Concomitant]
     Active Substance: ALBUTEROL
     Indication: PRODUCT USED FOR UNKNOWN INDICATION
     Dosage: PRN
     Route: 065
  14. XOLAIR [Suspect]
     Active Substance: OMALIZUMAB
     Route: 058
     Dates: start: 20160420
  15. XOLAIR [Suspect]
     Active Substance: OMALIZUMAB
     Route: 058
     Dates: start: 20160615
  16. XOLAIR [Suspect]
     Active Substance: OMALIZUMAB
     Route: 058
     Dates: start: 20170523

REACTIONS (17)
  - Lower respiratory tract congestion [Unknown]
  - Blister [Unknown]
  - Asthma [Recovered/Resolved]
  - Asthma [Recovered/Resolved]
  - Blood pressure increased [Unknown]
  - Fall [Unknown]
  - Bronchitis [Unknown]
  - Cerebrovascular accident [Unknown]
  - Forced expiratory volume decreased [Unknown]
  - Asthenia [Unknown]
  - Neuritis [Recovering/Resolving]
  - Rales [Unknown]
  - Nasopharyngitis [Unknown]
  - Oxygen saturation decreased [Unknown]
  - Pain in extremity [Not Recovered/Not Resolved]
  - Medical device site swelling [Not Recovered/Not Resolved]
  - Gait inability [Recovering/Resolving]

NARRATIVE: CASE EVENT DATE: 20150527
